FAERS Safety Report 20365131 (Version 1)
Quarter: 2022Q1

REPORT INFORMATION
  Report Type: Spontaneous
  Country: DE (occurrence: DE)
  Receive Date: 20220122
  Receipt Date: 20220122
  Transmission Date: 20220423
  Serious: Yes (Hospitalization)
  Sender: FDA-Public Use
  Company Number: DE-AMK-255418

PATIENT
  Age: 59 Year
  Sex: Female
  Weight: 61 kg

DRUGS (2)
  1. ALENDRONIC ACID [Suspect]
     Active Substance: ALENDRONIC ACID
     Indication: Osteoporosis
     Dosage: 70 MILLIGRAM, EVERY WEEK
     Route: 048
     Dates: start: 20210820, end: 20210924
  2. CHOLECALCIFEROL [Concomitant]
     Active Substance: CHOLECALCIFEROL
     Indication: Product used for unknown indication
     Dosage: 20 INTERNATIONAL UNIT, EVERY WEEK
     Route: 048
     Dates: start: 202101

REACTIONS (4)
  - Arthralgia [Recovered/Resolved]
  - Eye movement disorder [Recovered/Resolved]
  - Nausea [Recovered/Resolved]
  - Chest pain [Recovered/Resolved]

NARRATIVE: CASE EVENT DATE: 20210820
